FAERS Safety Report 13444843 (Version 2)
Quarter: 2017Q3

REPORT INFORMATION
  Report Type: Spontaneous
  Country: FR (occurrence: FR)
  Receive Date: 20170414
  Receipt Date: 20170704
  Transmission Date: 20171127
  Serious: Yes (Other)
  Sender: FDA-Public Use
  Company Number: FR-AMGEN-FRASP2017054081

PATIENT
  Age: 79 Year
  Sex: Female

DRUGS (5)
  1. XGEVA [Suspect]
     Active Substance: DENOSUMAB
     Indication: PRODUCT USED FOR UNKNOWN INDICATION
     Dosage: UNK
     Route: 065
  2. SUTENT [Concomitant]
     Active Substance: SUNITINIB MALATE
     Indication: RENAL DISORDER
     Dosage: DAY1-DAY28-4 WEEKS/6
     Dates: start: 20110606
  3. ZOMETA [Concomitant]
     Active Substance: ZOLEDRONIC ACID
  4. AXITINIB [Concomitant]
     Active Substance: AXITINIB
     Indication: RENAL DISORDER
     Dosage: UNK
     Dates: start: 20130320
  5. SORAFENIB [Concomitant]
     Active Substance: SORAFENIB
     Indication: RENAL DISORDER
     Dosage: UNK
     Dates: start: 20111012

REACTIONS (1)
  - Osteonecrosis of jaw [Recovered/Resolved]

NARRATIVE: CASE EVENT DATE: 20130920
